FAERS Safety Report 23989274 (Version 1)
Quarter: 2024Q2

REPORT INFORMATION
  Report Type: Spontaneous
  Country: JP (occurrence: JP)
  Receive Date: 20240619
  Receipt Date: 20240619
  Transmission Date: 20240716
  Serious: Yes (Other)
  Sender: FDA-Public Use
  Company Number: JP-CHEPLA-2024007639

PATIENT
  Age: 61 Year
  Sex: Male
  Weight: 51 kg

DRUGS (8)
  1. CAPECITABINE [Suspect]
     Active Substance: CAPECITABINE
     Indication: Rectal cancer stage III
     Dosage: 1200 MILLIGRAM, BID, MORNING AND EVENING AFTER MEALS 14 DAYS DOSE 7 DAYS REST X 8 COURSES; ORAL USE
     Route: 048
     Dates: start: 20230324, end: 20231026
  2. CAPECITABINE [Suspect]
     Active Substance: CAPECITABINE
     Indication: Rectal cancer stage III
     Dosage: HISTORICAL DRUG
  3. OXALIPLATIN [Suspect]
     Active Substance: OXALIPLATIN
     Indication: Rectal cancer stage III
     Route: 042
     Dates: start: 20230324, end: 20231013
  4. OXALIPLATIN [Suspect]
     Active Substance: OXALIPLATIN
     Indication: Rectal cancer stage III
     Dosage: HISTORICAL DRUG
  5. DECADRON [Suspect]
     Active Substance: DEXAMETHASONE
     Dates: start: 20230324, end: 20231013
  6. ALOXI [Suspect]
     Active Substance: PALONOSETRON HYDROCHLORIDE
     Dates: start: 20230324, end: 20231013
  7. OLODATEROL HYDROCHLORIDE\TIOTROPIUM BROMIDE MONOHYDRATE [Concomitant]
     Active Substance: OLODATEROL HYDROCHLORIDE\TIOTROPIUM BROMIDE MONOHYDRATE
     Dosage: INHALER
     Dates: start: 20230120
  8. UREA [Concomitant]
     Active Substance: UREA
     Dates: start: 20230324, end: 20231026

REACTIONS (4)
  - Second primary malignancy [Not Recovered/Not Resolved]
  - Acute myeloid leukaemia [Not Recovered/Not Resolved]
  - Neuropathy peripheral [Unknown]
  - Nausea [Unknown]

NARRATIVE: CASE EVENT DATE: 20240123
